FAERS Safety Report 19548003 (Version 1)
Quarter: 2021Q3

REPORT INFORMATION
  Report Type: Spontaneous
  Country: US (occurrence: US)
  Receive Date: 20210714
  Receipt Date: 20210714
  Transmission Date: 20211014
  Serious: No
  Sender: FDA-Public Use
  Company Number: US-STEMLINE THERAPEUTICS, INC.-2021ST000025

PATIENT
  Age: 16 Year
  Sex: Female

DRUGS (4)
  1. ELZONRIS [Suspect]
     Active Substance: TAGRAXOFUSP-ERZS
     Indication: BLASTIC PLASMACYTOID DENDRITIC CELL NEOPLASIA
     Dosage: CYCLE 1; EVERY 3 WEEKS
     Route: 042
  2. ELZONRIS [Suspect]
     Active Substance: TAGRAXOFUSP-ERZS
     Dosage: CYCLE 4; EVERY 3 WEEKS
     Route: 042
  3. ELZONRIS [Suspect]
     Active Substance: TAGRAXOFUSP-ERZS
     Dosage: CYCLE 3; EVERY 3 WEEKS
     Route: 042
  4. ELZONRIS [Suspect]
     Active Substance: TAGRAXOFUSP-ERZS
     Dosage: CYCLE 2; EVERY 3 WEEKS
     Route: 042

REACTIONS (4)
  - Pyrexia [Recovered/Resolved]
  - Nausea [Recovered/Resolved]
  - Headache [Recovered/Resolved]
  - Weight increased [Recovered/Resolved]
